FAERS Safety Report 6131653-8 (Version None)
Quarter: 2009Q1

REPORT INFORMATION
  Report Type: 
  Country: None (occurrence: None)
  Receive Date: 20090325
  Receipt Date: 20090113
  Transmission Date: 20090719
  Serious: Yes (Other)
  Sender: FDA-Public Use
  Company Number: US-BRISTOL-MYERS SQUIBB COMPANY-14468516

PATIENT
  Sex: Female

DRUGS (4)
  1. ERBITUX [Suspect]
     Dosage: 1 DOSAGE FORM = 10CCS OR LESS
  2. BENADRYL [Concomitant]
     Indication: PREMEDICATION
  3. DECADRON [Concomitant]
     Indication: PREMEDICATION
  4. KYTRIL [Concomitant]
     Indication: PREMEDICATION

REACTIONS (4)
  - CHEST PAIN [None]
  - FEELING ABNORMAL [None]
  - GENERALISED ERYTHEMA [None]
  - RASH PRURITIC [None]
